FAERS Safety Report 7863854-2 (Version None)
Quarter: 2011Q4

REPORT INFORMATION
  Report Type: 
  Country: None (occurrence: None)
  Receive Date: 20111028
  Receipt Date: 20111019
  Transmission Date: 20120403
  Serious: No
  Sender: FDA-Public Use
  Company Number: US-BIOGENIDEC-2011BI025319

PATIENT
  Age: 64 Year
  Sex: Female

DRUGS (1)
  1. TYSABRI [Suspect]
     Indication: MULTIPLE SCLEROSIS
     Route: 042
     Dates: start: 20110706, end: 20110930

REACTIONS (12)
  - GAIT DISTURBANCE [None]
  - ARTHRALGIA [None]
  - HEADACHE [None]
  - NEPHROLITHIASIS [None]
  - TREMOR [None]
  - CHEST PAIN [None]
  - ANXIETY [None]
  - NAUSEA [None]
  - SENSATION OF HEAVINESS [None]
  - MUSCLE SPASMS [None]
  - DIZZINESS [None]
  - MULTIPLE SCLEROSIS RELAPSE [None]
